FAERS Safety Report 4576001-X (Version None)
Quarter: 2005Q1

REPORT INFORMATION
  Report Type: 
  Country: None (occurrence: None)
  Receive Date: 20050204
  Receipt Date: 20050126
  Transmission Date: 20050727
  Serious: Yes (Hospitalization, Disabling, Other)
  Sender: FDA-Public Use
  Company Number: 2005-01-0377

PATIENT
  Age: 68 Year
  Sex: Male

DRUGS (25)
  1. GENTAMYCIN SULFATE [Suspect]
     Indication: HIP ARTHROPLASTY
     Dosage: IMPLANT
     Dates: start: 20021204, end: 20021204
  2. GENTAMICIN [Suspect]
     Indication: INFECTION
     Dosage: 240 MG INTRAVENOUS; 240/168 INTRAVENOUS
     Route: 042
     Dates: start: 20020110, end: 20020120
  3. GENTAMICIN [Suspect]
     Indication: INFECTION
     Dosage: 240 MG INTRAVENOUS; 240/168 INTRAVENOUS
     Route: 042
     Dates: start: 20030124, end: 20030129
  4. PROPAFENONE HYDROCHLORIDE [Concomitant]
  5. IBUPROFEN [Concomitant]
  6. DETRUSITOL (TOLTERODINE TARTRATE) [Concomitant]
  7. CLARITIN [Concomitant]
  8. MAGNYL [Concomitant]
  9. MAGNESIUM [Concomitant]
  10. COVERSYL [Concomitant]
  11. CENTYL MED KALIUMKLORID [Concomitant]
  12. TRADOLAN (TRAMADOL HCL) [Concomitant]
  13. ACETAMINOPHEN [Concomitant]
  14. NETILYN (NETILMICIN SULFATE) [Concomitant]
  15. IRON [Concomitant]
  16. DICLOCIL [Concomitant]
  17. DICLOXACILLIN [Concomitant]
  18. CONFORTID [Concomitant]
  19. CIPROXIN [Concomitant]
  20. ENALAPRIL MALEATE [Concomitant]
  21. ENOXAPARIN SODIUM [Concomitant]
  22. OXYCODONE [Concomitant]
  23. OXYCONTIN [Concomitant]
  24. INDOMETHACIN [Concomitant]
  25. MORPHINE [Concomitant]

REACTIONS (4)
  - DEAFNESS [None]
  - POST PROCEDURAL HAEMORRHAGE [None]
  - POSTOPERATIVE INFECTION [None]
  - TINNITUS [None]
